FAERS Safety Report 7799925-9 (Version None)
Quarter: 2011Q4

REPORT INFORMATION
  Report Type: 
  Country: None (occurrence: None)
  Receive Date: 20111006
  Receipt Date: 20110928
  Transmission Date: 20120403
  Serious: Yes (Other)
  Sender: FDA-Public Use
  Company Number: US-B.I. PHARMACEUTICALS,INC./RIDGEFIELD-2011-BP-09082YA

PATIENT
  Sex: Male

DRUGS (9)
  1. LIPITOR [Suspect]
     Route: 048
  2. HYDROCHLOROTHIAZIDE [Suspect]
     Route: 048
  3. PRILOSEC [Suspect]
     Route: 048
  4. COREG [Suspect]
     Route: 065
  5. ASPIRIN [Suspect]
     Route: 065
  6. TYLENOL-500 [Suspect]
     Route: 065
  7. TAMSULOSIN HCL [Suspect]
     Route: 048
  8. AVODART [Suspect]
     Indication: BENIGN PROSTATIC HYPERPLASIA
     Route: 048
  9. LISINOPRIL [Suspect]
     Route: 048

REACTIONS (3)
  - DIZZINESS [None]
  - INAPPROPRIATE SCHEDULE OF DRUG ADMINISTRATION [None]
  - SYNCOPE [None]
